FAERS Safety Report 9361904 (Version 1)
Quarter: 2013Q2

REPORT INFORMATION
  Report Type: Spontaneous
  Country: FI (occurrence: FI)
  Receive Date: 20130621
  Receipt Date: 20130621
  Transmission Date: 20140414
  Serious: Yes (Disabling)
  Sender: FDA-Public Use
  Company Number: FI-GLAXOSMITHKLINE-B0900974A

PATIENT
  Age: 69 Year
  Sex: Female

DRUGS (4)
  1. AVAMYS NASAL SPRAY [Suspect]
     Indication: RESPIRATORY TRACT INFECTION
     Route: 065
     Dates: start: 20100924, end: 20100927
  2. TAVANIC [Concomitant]
     Indication: RHINITIS
  3. PREDNISOLONE [Concomitant]
     Indication: RHINITIS
  4. BECLOMET [Concomitant]
     Indication: RHINITIS

REACTIONS (2)
  - Anosmia [Not Recovered/Not Resolved]
  - Ageusia [Not Recovered/Not Resolved]
